FAERS Safety Report 14020178 (Version 2)
Quarter: 2017Q4

REPORT INFORMATION
  Report Type: Spontaneous
  Country: JP (occurrence: JP)
  Receive Date: 20170928
  Receipt Date: 20171003
  Transmission Date: 20180321
  Serious: Yes (Other)
  Sender: FDA-Public Use
  Company Number: JP-JNJFOC-20170924501

PATIENT
  Age: 7 Decade
  Sex: Male

DRUGS (1)
  1. TRAMCET [Suspect]
     Active Substance: ACETAMINOPHEN\TRAMADOL
     Indication: NECK PAIN
     Route: 048
     Dates: start: 20170909

REACTIONS (1)
  - Angina pectoris [Unknown]

NARRATIVE: CASE EVENT DATE: 201709
